FAERS Safety Report 6671995-0 (Version None)
Quarter: 2010Q2

REPORT INFORMATION
  Report Type: 
  Country: None (occurrence: None)
  Receive Date: 20100405
  Receipt Date: 20100322
  Transmission Date: 20101027
  Serious: Yes (Life-Threatening)
  Sender: FDA-Public Use
  Company Number: 1-21557475

PATIENT
  Age: 79 Year
  Sex: Female
  Weight: 62.8685 kg

DRUGS (10)
  1. ROCURONIUM BROMIDE [Suspect]
     Indication: SURGERY
     Dosage: 25 MG (TOTAL DOSE)
     Dates: start: 20100203, end: 20100203
  2. FENTANYL [Suspect]
     Indication: INDUCTION OF ANAESTHESIA
     Dosage: 100 MCG, ONCE
     Dates: start: 20100203, end: 20100203
  3. TRICOR [Concomitant]
  4. METOPROLOL TARTRATE [Concomitant]
  5. DIOVAN [Concomitant]
  6. ZOCOR [Concomitant]
  7. METFORMIN HCL [Concomitant]
  8. NEXIUM [Concomitant]
  9. GLIPIZIDE [Concomitant]
  10. COUMADIN [Concomitant]

REACTIONS (4)
  - ANAESTHETIC COMPLICATION [None]
  - ASTHENIA [None]
  - MUSCLE CONTRACTIONS INVOLUNTARY [None]
  - RESPIRATORY FAILURE [None]
